FAERS Safety Report 4422517-6 (Version None)
Quarter: 2004Q3

REPORT INFORMATION
  Report Type: 
  Country: None (occurrence: None)
  Receive Date: 20040806
  Receipt Date: 20040726
  Transmission Date: 20050211
  Serious: Yes (Other)
  Sender: FDA-Public Use
  Company Number: 2004050748

PATIENT
  Sex: Female
  Weight: 54 kg

DRUGS (6)
  1. PROCARDIA [Suspect]
     Indication: HYPERTENSION
     Dosage: 90 MG (90 MG, 1 IN 1 D); ^ABOUT 8 YEARS AGO^
  2. NORVASC [Suspect]
     Indication: BLOOD PRESSURE
     Dosage: 10 MG (10 MG, 1IN 1 D), ORAL
     Route: 048
     Dates: start: 20040101, end: 20040101
  3. CALCIUM ACETATE (CALCIUM ACETATE) [Concomitant]
  4. NEPHROCAPS (FOLIC ACID, VITAMINS NOS) [Concomitant]
  5. ALL OTHER THERAPEUTIC PRODUCTS (ALL OTHER THERAPEUTIC PRODUCTS) [Concomitant]
  6. ATENOLOL [Concomitant]

REACTIONS (5)
  - EPISTAXIS [None]
  - HYPOTENSION [None]
  - NASAL DRYNESS [None]
  - RETINAL HAEMORRHAGE [None]
  - VISION BLURRED [None]
